FAERS Safety Report 25500394 (Version 2)
Quarter: 2025Q3

REPORT INFORMATION
  Report Type: Report from Study
  Country: CA (occurrence: CA)
  Receive Date: 20250701
  Receipt Date: 20250729
  Transmission Date: 20251021
  Serious: Yes (Hospitalization, Other)
  Sender: ABBVIE
  Company Number: CA-ABBVIE-6348945

PATIENT
  Age: 41 Year
  Sex: Female

DRUGS (1)
  1. RINVOQ [Suspect]
     Active Substance: UPADACITINIB
     Indication: Crohn^s disease
     Dosage: TABLET
     Route: 048

REACTIONS (3)
  - Pain [Unknown]
  - Gastritis bacterial [Unknown]
  - Intestinal resection [Unknown]

NARRATIVE: CASE EVENT DATE: 20250624
